FAERS Safety Report 12495704 (Version 1)
Quarter: 2016Q2

REPORT INFORMATION
  Report Type: Report from Study
  Country: IT (occurrence: IT)
  Receive Date: 20160624
  Receipt Date: 20160624
  Transmission Date: 20160815
  Serious: Yes (Death, Life-Threatening, Hospitalization, Disabling)
  Sender: FDA-Public Use
  Company Number: IT-ELI_LILLY_AND_COMPANY-IT201605011291

PATIENT
  Age: 66 Year
  Sex: Male
  Weight: 65 kg

DRUGS (4)
  1. RAMUCIRUMAB [Suspect]
     Active Substance: RAMUCIRUMAB
     Indication: MALIGNANT NEOPLASM OF RENAL PELVIS
     Dosage: UNK, CYCLICAL
     Route: 042
     Dates: start: 20160421, end: 20160512
  2. DOCETAXEL. [Suspect]
     Active Substance: DOCETAXEL
     Indication: MALIGNANT NEOPLASM OF RENAL PELVIS
     Dosage: UNK, CYCLICAL
     Route: 042
     Dates: start: 20160421, end: 20160512
  3. NEBIVOLOLO [Concomitant]
     Active Substance: NEBIVOLOL
     Indication: HYPERTENSION
     Dosage: UNK
     Dates: start: 1999
  4. ENALAPRIL [Concomitant]
     Active Substance: ENALAPRIL
     Indication: HYPERTENSION
     Dosage: UNK
     Dates: start: 1999

REACTIONS (2)
  - Sepsis [Fatal]
  - Intestinal perforation [Recovered/Resolved with Sequelae]

NARRATIVE: CASE EVENT DATE: 20160529
